FAERS Safety Report 8553115-0 (Version None)
Quarter: 2012Q3

REPORT INFORMATION
  Report Type: 
  Country: None (occurrence: None)
  Receive Date: 20120731
  Receipt Date: 20120731
  Transmission Date: 20120928
  Serious: No
  Sender: FDA-Public Use
  Company Number: IT-JNJFOC-20120703420

PATIENT

DRUGS (1)
  1. TOPIRAMATE [Suspect]
     Indication: TEMPORAL LOBE EPILEPSY
     Route: 048

REACTIONS (1)
  - ADVERSE REACTION [None]
